FAERS Safety Report 5815836-X (Version None)
Quarter: 2008Q3

REPORT INFORMATION
  Report Type: 
  Country: None (occurrence: None)
  Receive Date: 20080721
  Receipt Date: 20080710
  Transmission Date: 20090109
  Serious: Yes (Hospitalization, Other)
  Sender: FDA-Public Use
  Company Number: US-JNJFOC-20080503892

PATIENT
  Sex: Female
  Weight: 136.99 kg

DRUGS (14)
  1. REMICADE [Suspect]
     Route: 042
  2. REMICADE [Suspect]
     Indication: SARCOIDOSIS
     Route: 042
  3. SHORT ACTING INSULIN [Suspect]
     Indication: DIABETES MELLITUS
  4. ORAL HYPOGLYCEMICS [Concomitant]
     Indication: DIABETES MELLITUS
  5. GEMFIBROZIL [Concomitant]
  6. FUROSEMIDE [Concomitant]
  7. FUROSEMIDE [Concomitant]
  8. LISINOPRIL [Concomitant]
     Route: 048
  9. LISINOPRIL [Concomitant]
     Route: 048
  10. ATENOLOL [Concomitant]
  11. ATENOLOL [Concomitant]
  12. ALLOPURINOL [Concomitant]
     Route: 048
  13. TRAMADOL HCL [Concomitant]
  14. TIZANIDINE HCL [Concomitant]
     Route: 048

REACTIONS (7)
  - ACCELERATED HYPERTENSION [None]
  - CHEST PAIN [None]
  - CONVULSION [None]
  - HYPOVITAMINOSIS [None]
  - METABOLIC ENCEPHALOPATHY [None]
  - RESPIRATORY FAILURE [None]
  - VERTIGO POSITIONAL [None]
